FAERS Safety Report 7757562-6 (Version None)
Quarter: 2011Q3

REPORT INFORMATION
  Report Type: 
  Country: None (occurrence: None)
  Receive Date: 20110916
  Receipt Date: 20110909
  Transmission Date: 20111222
  Serious: Yes (Hospitalization, Other)
  Sender: FDA-Public Use
  Company Number: AU-ABBOTT-11P-008-0731081-00

PATIENT
  Sex: Male

DRUGS (4)
  1. NYSTATIN [Concomitant]
     Indication: PRODUCT USED FOR UNKNOWN INDICATION
  2. HUMIRA [Suspect]
     Indication: CROHN'S DISEASE
     Dosage: ALTERNATING WEEKLY AND BI-WEEKLY DOSING
     Dates: start: 20040101
  3. PREDNISOLONE [Concomitant]
     Indication: PRODUCT USED FOR UNKNOWN INDICATION
     Dosage: MANE, AS REQUIRED
     Route: 048
  4. ACETAMINOPHEN [Concomitant]
     Indication: PRODUCT USED FOR UNKNOWN INDICATION
     Route: 048

REACTIONS (21)
  - ANAL FISTULA [None]
  - ANAL ABSCESS [None]
  - MUSCULAR WEAKNESS [None]
  - SPEECH DISORDER [None]
  - HEADACHE [None]
  - ASTHENIA [None]
  - OXYGEN SATURATION DECREASED [None]
  - SPUTUM INCREASED [None]
  - CNS VENTRICULITIS [None]
  - CONFUSIONAL STATE [None]
  - SUBCUTANEOUS ABSCESS [None]
  - LOWER RESPIRATORY TRACT INFECTION [None]
  - PNEUMONIA [None]
  - ALTERED STATE OF CONSCIOUSNESS [None]
  - HYDROCEPHALUS [None]
  - INCONTINENCE [None]
  - IMMUNOSUPPRESSION [None]
  - AGITATION [None]
  - BRAIN ABSCESS [None]
  - PYREXIA [None]
  - HYPOKINESIA [None]
